FAERS Safety Report 21075757 (Version 1)
Quarter: 2022Q3

REPORT INFORMATION
  Report Type: Spontaneous
  Country: JP (occurrence: JP)
  Receive Date: 20220713
  Receipt Date: 20220713
  Transmission Date: 20221027
  Serious: Yes (Hospitalization)
  Sender: FDA-Public Use
  Company Number: JP-ELI_LILLY_AND_COMPANY-JP202011013874

PATIENT
  Age: 59 Year
  Sex: Male

DRUGS (5)
  1. ZYPREXA [Interacting]
     Active Substance: OLANZAPINE
     Indication: Antiemetic supportive care
     Dosage: 5 MG, DAILY
     Route: 048
     Dates: start: 202001, end: 202008
  2. METOCLOPRAMIDE [Interacting]
     Active Substance: METOCLOPRAMIDE
     Indication: Antiemetic supportive care
     Dosage: 15 MG, DAILY
     Route: 065
  3. PALONOSETRON HYDROCHLORIDE [Interacting]
     Active Substance: PALONOSETRON HYDROCHLORIDE
     Indication: Antiemetic supportive care
     Dosage: 0.75 MG
     Route: 065
  4. DEXAMETHASONE [Concomitant]
     Active Substance: DEXAMETHASONE
     Indication: Antiemetic supportive care
     Dosage: 6.6 MG
  5. APREPITANT [Concomitant]
     Active Substance: APREPITANT
     Indication: Antiemetic supportive care
     Dosage: 125 MG, OTHER

REACTIONS (2)
  - Extrapyramidal disorder [Recovered/Resolved]
  - Drug interaction [Unknown]

NARRATIVE: CASE EVENT DATE: 20200801
